FAERS Safety Report 4775188-3 (Version None)
Quarter: 2005Q3

REPORT INFORMATION
  Report Type: 
  Country: None (occurrence: None)
  Receive Date: 20050920
  Receipt Date: 20050824
  Transmission Date: 20060218
  Serious: Yes (Hospitalization)
  Sender: FDA-Public Use
  Company Number: 2004230176US

PATIENT
  Age: 80 Year
  Sex: Female
  Weight: 77.1115 kg

DRUGS (4)
  1. DETROL LA [Suspect]
     Indication: POLLAKIURIA
     Dates: start: 20040801, end: 20040818
  2. DETROL LA [Suspect]
     Indication: POLLAKIURIA
     Dates: start: 20040823
  3. ANTIGLAUCOMA PREPARATIONS AND MIOTICS (ANTIGLAUCOMA PREPARATIONS AND M [Concomitant]
  4. ALL OTHER THERAPEUTIC PRODUCTS (ALL OTHER THERAPEUTIC PRODUCTS) [Concomitant]

REACTIONS (3)
  - CONSTIPATION [None]
  - RECTAL HAEMORRHAGE [None]
  - UNEVALUABLE EVENT [None]
